FAERS Safety Report 15628661 (Version 4)
Quarter: 2018Q4

REPORT INFORMATION
  Report Type: Report from Study
  Country: TH (occurrence: TH)
  Receive Date: 20181116
  Receipt Date: 20181218
  Transmission Date: 20190205
  Serious: Yes (Hospitalization)
  Sender: FDA-Public Use
  Company Number: PHHO2018TH011976

PATIENT
  Age: 36 Year
  Sex: Male
  Weight: 62 kg

DRUGS (2)
  1. KAF156 [Suspect]
     Active Substance: GANAPLACIDE
     Indication: MALARIA
     Dosage: 400 MG, ONCE/SINGLE
     Route: 048
     Dates: start: 20180930
  2. LUMEFANTRINE [Suspect]
     Active Substance: LUMEFANTRINE
     Indication: MALARIA
     Dosage: 960 MG, ONCE/SINGLE
     Route: 048
     Dates: start: 20180930

REACTIONS (1)
  - Road traffic accident [Recovered/Resolved]

NARRATIVE: CASE EVENT DATE: 20181105
